FAERS Safety Report 9461234 (Version 1)
Quarter: 2013Q3

REPORT INFORMATION
  Report Type: Spontaneous
  Country: US (occurrence: US)
  Receive Date: 20130816
  Receipt Date: 20130816
  Transmission Date: 20140515
  Serious: No
  Sender: FDA-Public Use
  Company Number: US-PFIZER INC-2013235693

PATIENT
  Age: 72 Year
  Sex: Female
  Weight: 74.83 kg

DRUGS (3)
  1. TOVIAZ [Suspect]
     Indication: INCONTINENCE
     Dosage: 4 MG, 1X/DAY
     Route: 048
     Dates: start: 201307
  2. PRO-AIR [Suspect]
     Indication: CHRONIC OBSTRUCTIVE PULMONARY DISEASE
  3. PRO-AIR [Suspect]
     Indication: ASTHMA

REACTIONS (1)
  - Drug effect incomplete [Unknown]
